FAERS Safety Report 18529168 (Version 2)
Quarter: 2020Q4

REPORT INFORMATION
  Report Type: Spontaneous
  Country: US (occurrence: US)
  Receive Date: 20201120
  Receipt Date: 20201223
  Transmission Date: 20210114
  Serious: No
  Sender: FDA-Public Use
  Company Number: US-CELGENEUS-USA-20201103117

PATIENT
  Sex: Female

DRUGS (4)
  1. THALOMID [Suspect]
     Active Substance: THALIDOMIDE
     Indication: TYPE 2 LEPRA REACTION
     Dosage: 50 MILLIGRAM (BLISTER PAK) (NIGHTLY)
     Route: 048
     Dates: start: 20200425, end: 20201112
  2. CLARITHROMYCIN. [Concomitant]
     Active Substance: CLARITHROMYCIN
     Indication: LEPROSY
     Dosage: 500 MILLIGRAM
     Route: 048
     Dates: start: 20180907, end: 20201130
  3. LEVAQUIN [Concomitant]
     Active Substance: LEVOFLOXACIN
     Indication: LEPROSY
     Dosage: 500 MILLIGRAM
     Route: 048
     Dates: start: 20180907, end: 20201130
  4. RIFAMPIN. [Concomitant]
     Active Substance: RIFAMPIN
     Indication: LEPROSY
     Dosage: 500 MILLIGRAM
     Route: 048
     Dates: start: 20180907, end: 20201130

REACTIONS (3)
  - Insomnia [Not Recovered/Not Resolved]
  - Leprosy [Not Recovered/Not Resolved]
  - Paraesthesia [Not Recovered/Not Resolved]

NARRATIVE: CASE EVENT DATE: 2020
